FAERS Safety Report 6894703-7 (Version None)
Quarter: 2010Q3

REPORT INFORMATION
  Report Type: 
  Country: None (occurrence: None)
  Receive Date: 20100727
  Receipt Date: 20100714
  Transmission Date: 20110219
  Serious: No
  Sender: FDA-Public Use
  Company Number: US-JNJFOC-20100606131

PATIENT
  Sex: Female
  Weight: 114.31 kg

DRUGS (29)
  1. DURAGESIC-100 [Suspect]
     Indication: PAIN
     Route: 062
  2. DURAGESIC-100 [Suspect]
     Route: 062
  3. DURAGESIC-100 [Suspect]
     Route: 062
  4. DURAGESIC-100 [Suspect]
     Route: 062
  5. DURAGESIC-100 [Suspect]
     Route: 062
  6. DURAGESIC-100 [Suspect]
     Route: 062
  7. DURAGESIC-100 [Suspect]
     Route: 062
  8. DURAGESIC-100 [Suspect]
     Route: 062
  9. FENTANYL CITRATE [Suspect]
     Indication: PAIN
     Route: 062
  10. SANDOZ FENTANYL TRANSDERMAL SYSTEM [Suspect]
     Indication: PAIN
     Route: 062
  11. AMBIEN [Suspect]
     Indication: SLEEP DISORDER
     Route: 048
  12. PERCOCET [Concomitant]
     Indication: BREAKTHROUGH PAIN
     Route: 048
  13. PERCOCET [Concomitant]
     Route: 048
  14. BENICAR [Concomitant]
     Indication: BLOOD PRESSURE
     Route: 048
  15. ZETIA [Concomitant]
     Indication: BLOOD CHOLESTEROL
     Route: 048
  16. PLAVIX [Concomitant]
     Indication: ANTICOAGULANT THERAPY
     Route: 048
  17. PLAVIX [Concomitant]
     Route: 048
  18. CARDIZEM [Concomitant]
     Indication: BLOOD PRESSURE
     Route: 048
  19. CARDIZEM [Concomitant]
     Indication: HEART RATE
     Route: 048
  20. LIPITOR [Concomitant]
     Indication: BLOOD CHOLESTEROL
     Route: 048
  21. FOLIC ACID [Concomitant]
     Indication: PRODUCT USED FOR UNKNOWN INDICATION
     Route: 048
  22. FOLIC ACID [Concomitant]
     Route: 048
  23. ZOLOFT [Concomitant]
     Indication: PRODUCT USED FOR UNKNOWN INDICATION
     Route: 048
  24. PROAIR HFA [Concomitant]
     Indication: ASTHMA
     Route: 055
  25. CYMBALTA [Concomitant]
     Indication: ANTIDEPRESSANT THERAPY
     Route: 048
  26. CYMBALTA [Concomitant]
     Indication: PAIN
     Route: 048
  27. BENICAR HCT [Concomitant]
     Indication: CARDIAC DISORDER
     Dosage: 40/25 MG EVERY DAY
     Route: 048
  28. BENICAR HCT [Concomitant]
     Indication: BLOOD PRESSURE
     Dosage: 40/25 MG EVERY DAY
     Route: 048
  29. LUNESTA [Concomitant]
     Indication: SLEEP DISORDER
     Route: 048

REACTIONS (7)
  - INAPPROPRIATE SCHEDULE OF DRUG ADMINISTRATION [None]
  - INCORRECT DOSE ADMINISTERED [None]
  - NAUSEA [None]
  - OVERDOSE [None]
  - PRODUCT QUALITY ISSUE [None]
  - VOMITING [None]
  - WEIGHT INCREASED [None]
